FAERS Safety Report 8010858-5 (Version None)
Quarter: 2011Q4

REPORT INFORMATION
  Report Type: 
  Country: None (occurrence: None)
  Receive Date: 20111228
  Receipt Date: 20111215
  Transmission Date: 20120403
  Serious: Yes (Death)
  Sender: FDA-Public Use
  Company Number: JP-ELI_LILLY_AND_COMPANY-JP201106006867

PATIENT
  Age: 75 Year
  Sex: Female

DRUGS (1)
  1. FORTEO [Suspect]
     Dosage: UNK
     Route: 058
     Dates: start: 20110602

REACTIONS (7)
  - PYREXIA [None]
  - NAUSEA [None]
  - DEATH [None]
  - ALOPECIA [None]
  - ASTHENIA [None]
  - URTICARIA [None]
  - DECREASED APPETITE [None]
